FAERS Safety Report 4453222-8 (Version None)
Quarter: 2004Q3

REPORT INFORMATION
  Report Type: 
  Country: None (occurrence: None)
  Receive Date: 20040901
  Receipt Date: 20040714
  Transmission Date: 20050211
  Serious: Yes (Hospitalization)
  Sender: FDA-Public Use
  Company Number: US083503

PATIENT
  Age: 28 Year
  Sex: Female

DRUGS (7)
  1. ENBREL [Suspect]
     Indication: PSORIASIS
     Dosage: 50 MG, 2 IN 1 WEEKS, SC
     Route: 058
     Dates: start: 20040615
  2. MONTELUKAST [Concomitant]
  3. CETIRIZINE HCL [Concomitant]
  4. RABEPRAZOLE SODIUM [Concomitant]
  5. ETHINYL ESTRADIOL/NROGESTIMATE [Concomitant]
  6. VENLAFAXINE HCL [Concomitant]
  7. PREDNISONE [Concomitant]

REACTIONS (2)
  - RASH [None]
  - VIRAL INFECTION [None]
